FAERS Safety Report 9775566 (Version 1)
Quarter: 2013Q4

REPORT INFORMATION
  Report Type: Spontaneous
  Country: US (occurrence: US)
  Receive Date: 20131220
  Receipt Date: 20131220
  Transmission Date: 20140711
  Serious: No
  Sender: FDA-Public Use
  Company Number: US-BAYER-2013-155679

PATIENT
  Age: 75 Year
  Sex: Female
  Weight: 61 kg

DRUGS (1)
  1. ALEVE TABLET [Suspect]
     Dosage: 1 DF, UNK
     Route: 048

REACTIONS (2)
  - Foreign body [Recovered/Resolved]
  - Throat irritation [Not Recovered/Not Resolved]
